FAERS Safety Report 9902964 (Version 1)
Quarter: 2014Q1

REPORT INFORMATION
  Report Type: Spontaneous
  Country: US (occurrence: US)
  Receive Date: 20140217
  Receipt Date: 20140217
  Transmission Date: 20141002
  Serious: Yes (Hospitalization, Other)
  Sender: FDA-Public Use
  Company Number: PHEH2014US002996

PATIENT
  Sex: Female

DRUGS (4)
  1. DIOVAN [Suspect]
     Dosage: 160 MG, QD
  2. ASPIRIN [Concomitant]
     Dosage: UNK UKN, UNK
  3. MULTIVITAMIN [Concomitant]
     Dosage: UNK UKN, UNK
  4. PREMARIN [Concomitant]
     Dosage: 0.25 UKN, UNK

REACTIONS (2)
  - Bronchitis [Unknown]
  - Pharyngitis streptococcal [Unknown]
